FAERS Safety Report 14834983 (Version 1)
Quarter: 2018Q2

REPORT INFORMATION
  Report Type: Spontaneous
  Country: US (occurrence: US)
  Receive Date: 20180501
  Receipt Date: 20180501
  Transmission Date: 20180711
  Serious: Yes (Hospitalization)
  Sender: FDA-Public Use
  Company Number: US-VIFOR (INTERNATIONAL) INC.-VIT-2018-03985

PATIENT
  Sex: Male

DRUGS (19)
  1. LIPITOR [Concomitant]
     Active Substance: ATORVASTATIN CALCIUM
  2. TERAZOSIN [Concomitant]
     Active Substance: TERAZOSIN\TERAZOSIN HYDROCHLORIDE
  3. ACETYLSALICYLIC ACID [Concomitant]
     Active Substance: ASPIRIN
  4. LISINOPRIL. [Concomitant]
     Active Substance: LISINOPRIL
  5. ASCORBIC ACID. [Concomitant]
     Active Substance: ASCORBIC ACID
  6. XARELTO [Concomitant]
     Active Substance: RIVAROXABAN
  7. VELTASSA [Suspect]
     Active Substance: PATIROMER
     Route: 048
     Dates: start: 201803
  8. AMLODIPINE [Concomitant]
     Active Substance: AMLODIPINE BESYLATE
  9. TIKOSYN [Concomitant]
     Active Substance: DOFETILIDE
  10. COD-LIVER OIL [Concomitant]
     Active Substance: FISH OIL
  11. COQ10 [Concomitant]
     Active Substance: UBIDECARENONE
  12. TOCOPHEROL [Concomitant]
     Active Substance: TOCOPHEROL
  13. MAGNESIUM [Concomitant]
     Active Substance: MAGNESIUM
  14. VELTASSA [Suspect]
     Active Substance: PATIROMER
     Indication: BLOOD POTASSIUM INCREASED
     Route: 048
     Dates: start: 2017
  15. ERGOCALCIFEROL. [Concomitant]
     Active Substance: ERGOCALCIFEROL
  16. FOLIC ACID. [Concomitant]
     Active Substance: FOLIC ACID
  17. SPIRONOLACTONE. [Concomitant]
     Active Substance: SPIRONOLACTONE
  18. ULORIC [Concomitant]
     Active Substance: FEBUXOSTAT
  19. SALSALATE. [Concomitant]
     Active Substance: SALSALATE

REACTIONS (6)
  - Sleep apnoea syndrome [Recovered/Resolved]
  - Memory impairment [Recovered/Resolved]
  - Tremor [Recovered/Resolved]
  - Inappropriate schedule of drug administration [Not Recovered/Not Resolved]
  - Feeling abnormal [Recovered/Resolved]
  - Heart rate irregular [Recovered/Resolved]

NARRATIVE: CASE EVENT DATE: 2018
